FAERS Safety Report 4635288-5 (Version None)
Quarter: 2005Q2

REPORT INFORMATION
  Report Type: 
  Country: None (occurrence: None)
  Receive Date: 20050414
  Receipt Date: 20050405
  Transmission Date: 20051028
  Serious: Yes (Other)
  Sender: FDA-Public Use
  Company Number: PHEH2005US03974

PATIENT
  Age: 32 Year
  Sex: Male

DRUGS (2)
  1. DESFERAL [Suspect]
     Indication: THALASSAEMIA BETA
     Dosage: 2 G, PRN
  2. DESFERAL [Suspect]
     Dosage: 2500 MG, QD
     Route: 058

REACTIONS (1)
  - LEUKOCYTOCLASTIC VASCULITIS [None]
